FAERS Safety Report 6201336-4 (Version None)
Quarter: 2009Q2

REPORT INFORMATION
  Report Type: 
  Country: None (occurrence: None)
  Receive Date: 20090526
  Receipt Date: 20090513
  Transmission Date: 20091009
  Serious: Yes (Death)
  Sender: FDA-Public Use
  Company Number: RU-ROCHE-491304

PATIENT
  Sex: Female
  Weight: 45 kg

DRUGS (3)
  1. CAPECITABINE [Suspect]
     Indication: BREAST CANCER
     Dosage: GIVEN ON DAYS 1-14 OF 21 DAY CYCLE AS PER PROTOCOL.
     Route: 048
     Dates: start: 20070129, end: 20070301
  2. DOCETAXEL [Suspect]
     Indication: BREAST CANCER
     Dosage: GIVEN ON DAY 1 OF 21 DAY CYCLE AS PER PROTOCOL.
     Route: 042
     Dates: start: 20070129, end: 20070220
  3. HEPTRAL [Concomitant]
     Dates: start: 20070313

REACTIONS (1)
  - HEPATIC FAILURE [None]
